FAERS Safety Report 15406455 (Version 2)
Quarter: 2018Q4

REPORT INFORMATION
  Report Type: Spontaneous
  Country: AU (occurrence: AU)
  Receive Date: 20180920
  Receipt Date: 20181008
  Transmission Date: 20190204
  Serious: Yes (Other)
  Sender: FDA-Public Use
  Company Number: AU-LPDUSPRD-20181702

PATIENT
  Age: 39 Year
  Sex: Female
  Weight: 62 kg

DRUGS (3)
  1. DEXAMPHETAMINE [Concomitant]
     Active Substance: AMPHETAMINE
     Dosage: 5 MG (1 IN 1 D)
     Route: 048
  2. LEXAPRO [Concomitant]
     Active Substance: ESCITALOPRAM OXALATE
     Dosage: 10 MG
     Route: 048
  3. FERINJECT [Suspect]
     Active Substance: FERRIC CARBOXYMALTOSE
     Dosage: 500 MG/ 40 ML SALINE
     Route: 040

REACTIONS (10)
  - Tachycardia [Unknown]
  - Dysgeusia [Unknown]
  - Erythema [Unknown]
  - Product preparation error [Unknown]
  - Heart rate increased [Unknown]
  - Foaming at mouth [Unknown]
  - Pulse absent [Unknown]
  - Hyperhidrosis [Unknown]
  - Flushing [Unknown]
  - Fatigue [Unknown]
